FAERS Safety Report 8807398 (Version 1)
Quarter: 2012Q4

REPORT INFORMATION
  Report Type: 
  Country: US (occurrence: US)
  Receive Date: 20120925
  Receipt Date: 20120925
  Transmission Date: 20130627
  Serious: No
  Sender: FDA-Public Use
  Company Number: US-MYLANLABS-2012S1004873

PATIENT
  Age: 72 Year
  Sex: Female

DRUGS (4)
  1. NITROGLYCERIN TRANSDERMAL SYSTEM [Suspect]
     Indication: ANGINA PECTORIS
     Dosage: changes every day
     Route: 062
  2. PROVENTIL [Concomitant]
  3. SEREVENT [Concomitant]
  4. LISINOPRIL [Concomitant]

REACTIONS (3)
  - Nausea [Not Recovered/Not Resolved]
  - Dizziness [Not Recovered/Not Resolved]
  - Dyspnoea [Not Recovered/Not Resolved]
